FAERS Safety Report 11741385 (Version 1)
Quarter: 2015Q4

REPORT INFORMATION
  Report Type: Spontaneous
  Country: US (occurrence: None)
  Receive Date: 20151113
  Receipt Date: 20151113
  Transmission Date: 20160304
  Serious: Yes (Hospitalization)
  Sender: FDA-Public Use
  Company Number: None

PATIENT
  Age: 61 Year
  Sex: Male
  Weight: 84.8 kg

DRUGS (1)
  1. VELCADE [Suspect]
     Active Substance: BORTEZOMIB
     Dates: end: 20151103

REACTIONS (3)
  - Lactic acidosis [None]
  - Cardiac arrest [None]
  - CSF lymphocyte count increased [None]

NARRATIVE: CASE EVENT DATE: 20151104
